FAERS Safety Report 15877127 (Version 1)
Quarter: 2019Q1

REPORT INFORMATION
  Report Type: Report from Study
  Country: US (occurrence: US)
  Receive Date: 20190128
  Receipt Date: 20190128
  Transmission Date: 20190417
  Serious: Yes (Hospitalization)
  Sender: FDA-Public Use
  Company Number: US-SAKK-2019SA015514AA

PATIENT
  Age: 80 Year
  Sex: Female

DRUGS (2)
  1. INSULIN GLARGINE [Suspect]
     Active Substance: INSULIN GLARGINE
     Indication: TYPE 1 DIABETES MELLITUS
     Dosage: 30 U, QD
     Route: 058
  2. NOVOLIN [Concomitant]
     Active Substance: INSULIN HUMAN
     Dosage: UNK UNK, QID

REACTIONS (10)
  - General physical condition abnormal [Recovered/Resolved]
  - Thrombosis [Recovered/Resolved]
  - Fatigue [Not Recovered/Not Resolved]
  - Polyp [Recovered/Resolved]
  - Haemorrhage [Not Recovered/Not Resolved]
  - Intracardiac thrombus [Recovered/Resolved]
  - Pulmonary thrombosis [Recovered/Resolved]
  - Stent placement [Unknown]
  - Asthenia [Not Recovered/Not Resolved]
  - Asthenia [Unknown]

NARRATIVE: CASE EVENT DATE: 2005
